FAERS Safety Report 5899396-3 (Version None)
Quarter: 2008Q3

REPORT INFORMATION
  Report Type: 
  Country: None (occurrence: None)
  Receive Date: 20080924
  Receipt Date: 20080915
  Transmission Date: 20090109
  Serious: Yes (Hospitalization)
  Sender: FDA-Public Use
  Company Number: JPI-P-004703

PATIENT
  Age: 24 Year
  Sex: Male
  Weight: 99.7913 kg

DRUGS (6)
  1. XYREM [Suspect]
     Indication: CATAPLEXY
     Dosage: (7.5 GM, 1 D) ,ORAL
     Route: 048
  2. XYREM [Suspect]
     Indication: NARCOLEPSY
     Dosage: (7.5 GM, 1 D) ,ORAL
     Route: 048
  3. LAMOTRIGINE [Concomitant]
  4. INSULIN (INSULIN) [Concomitant]
  5. FENOFIBRATE [Concomitant]
  6. METHYLPHENIDATE HCL [Concomitant]

REACTIONS (2)
  - HYPERTRIGLYCERIDAEMIA [None]
  - PANCREATITIS ACUTE [None]
